FAERS Safety Report 13176413 (Version 2)
Quarter: 2017Q1

REPORT INFORMATION
  Report Type: Spontaneous
  Country: US (occurrence: US)
  Receive Date: 20170201
  Receipt Date: 20170210
  Transmission Date: 20170428
  Serious: Yes (Hospitalization, Disabling, Other)
  Sender: FDA-Public Use
  Company Number: US-SAOL THERAPEUTICS-2017SAO00167

PATIENT
  Age: 68 Year
  Sex: Male

DRUGS (2)
  1. BACLOFEN. [Suspect]
     Active Substance: BACLOFEN
     Indication: MUSCLE SPASTICITY
     Dosage: 998.8 ?G, \DAY
     Route: 037
  2. BACLOFEN. [Suspect]
     Active Substance: BACLOFEN
     Indication: CEREBRAL PALSY
     Dosage: 22 ?G, \DAY
     Route: 037

REACTIONS (15)
  - Mental status changes [Not Recovered/Not Resolved]
  - Neuromyopathy [Unknown]
  - Muscle spasms [Unknown]
  - General physical health deterioration [Not Recovered/Not Resolved]
  - Mobility decreased [Not Recovered/Not Resolved]
  - Overdose [Unknown]
  - Urinary tract infection [Unknown]
  - Coma [Recovered/Resolved]
  - Device occlusion [Unknown]
  - Drug withdrawal syndrome [Unknown]
  - Cardiac disorder [Not Recovered/Not Resolved]
  - Hallucination [Unknown]
  - Myocardial infarction [Recovered/Resolved]
  - Device infusion issue [Unknown]
  - Dementia [Not Recovered/Not Resolved]

NARRATIVE: CASE EVENT DATE: 201512
